FAERS Safety Report 5271867-2 (Version None)
Quarter: 2007Q1

REPORT INFORMATION
  Report Type: 
  Country: None (occurrence: None)
  Receive Date: 20070316
  Receipt Date: 20070305
  Transmission Date: 20070707
  Serious: Yes (Other)
  Sender: FDA-Public Use
  Company Number: GXKR2007TR02264

PATIENT
  Age: 10 Year
  Sex: Male

DRUGS (1)
  1. SOMATROPIN (NGX) (SOMATROPIN) UNKNOWN [Suspect]
     Indication: GROWTH HORMONE DEFICIENCY
     Dosage: 0.03 MG/KG, QD

REACTIONS (2)
  - HYPOPERFUSION [None]
  - TOURETTE'S DISORDER [None]
